FAERS Safety Report 4777581-1 (Version None)
Quarter: 2005Q3

REPORT INFORMATION
  Report Type: 
  Country: None (occurrence: None)
  Receive Date: 20050921
  Receipt Date: 20050906
  Transmission Date: 20060218
  Serious: Yes (Hospitalization)
  Sender: FDA-Public Use
  Company Number: 200507811

PATIENT
  Age: 63 Year
  Sex: Female

DRUGS (4)
  1. RESTASIS [Suspect]
     Indication: DRY EYE
     Dosage: 2 DROP TID EYE
     Dates: start: 20040501, end: 20041201
  2. TAMOXIFEN CITRATE [Concomitant]
  3. FOSAMAX [Concomitant]
  4. SYNTHROID [Concomitant]

REACTIONS (3)
  - DEHYDRATION [None]
  - VIRAL INFECTION [None]
  - WHITE BLOOD CELL COUNT DECREASED [None]
